FAERS Safety Report 6609376-8 (Version None)
Quarter: 2010Q1

REPORT INFORMATION
  Report Type: 
  Country: None (occurrence: None)
  Receive Date: 20100224
  Receipt Date: 20100208
  Transmission Date: 20100710
  Serious: Yes (Congenital Anomaly)
  Sender: FDA-Public Use
  Company Number: GXKR2010KO01703

PATIENT
  Sex: Female

DRUGS (1)
  1. DICLOFENAC (NGX) (DICLOFENAC) AMPOULE [Suspect]
     Dosage: MATERNAL DOSE: 75  MG/DAY, TRANSPLACENTAL
     Route: 064

REACTIONS (9)
  - ANAL STENOSIS [None]
  - APLASIA CUTIS CONGENITA [None]
  - CONGENITAL HAIR DISORDER [None]
  - CONGENITAL JOINT MALFORMATION [None]
  - EYE MOVEMENT DISORDER [None]
  - FLOPPY INFANT [None]
  - FOOT DEFORMITY [None]
  - INTESTINAL STOMA [None]
  - MATERNAL DRUGS AFFECTING FOETUS [None]
